FAERS Safety Report 5102947-X (Version None)
Quarter: 2006Q3

REPORT INFORMATION
  Report Type: 
  Country: None (occurrence: None)
  Receive Date: 20060908
  Receipt Date: 20060902
  Transmission Date: 20061208
  Serious: Yes (Other)
  Sender: FDA-Public Use
  Company Number: 2006105973

PATIENT
  Sex: Male

DRUGS (1)
  1. BENADRYL [Suspect]
     Dosage: 40 (FOUR SHEETS OF TEN) ONCE, ORAL
     Route: 048
     Dates: start: 20060902, end: 20060902

REACTIONS (2)
  - INCORRECT DOSE ADMINISTERED [None]
  - INTENTIONAL DRUG MISUSE [None]
